FAERS Safety Report 23325643 (Version 13)
Quarter: 2025Q1

REPORT INFORMATION
  Report Type: Report from Study
  Country: CR (occurrence: CR)
  Receive Date: 20231221
  Receipt Date: 20250207
  Transmission Date: 20250409
  Serious: Yes (Other)
  Sender: NOVARTIS
  Company Number: CR-002147023-NVSC2023CR199825

PATIENT
  Age: 48 Year
  Sex: Female
  Weight: 60 kg

DRUGS (14)
  1. KISQALI [Suspect]
     Active Substance: RIBOCICLIB
     Indication: Breast cancer
     Dosage: 600 MG, QD
     Route: 048
     Dates: start: 20230703
  2. KISQALI [Suspect]
     Active Substance: RIBOCICLIB
     Dosage: 600 MG, QD
     Route: 048
     Dates: start: 20230711, end: 20231217
  3. KISQALI [Suspect]
     Active Substance: RIBOCICLIB
     Dosage: 400 MG, QD
     Route: 048
     Dates: start: 202307, end: 202401
  4. KISQALI [Suspect]
     Active Substance: RIBOCICLIB
     Dosage: 400 MG, QD (2 TABLETS)
     Route: 048
     Dates: start: 202403
  5. KISQALI [Suspect]
     Active Substance: RIBOCICLIB
     Route: 048
     Dates: start: 20241119
  6. KISQALI [Suspect]
     Active Substance: RIBOCICLIB
     Dosage: 3 DOSAGE FORM, QD
     Route: 048
  7. KISQALI [Suspect]
     Active Substance: RIBOCICLIB
     Dosage: 2 DOSAGE FORM, QD
     Route: 048
  8. ANASTROZOLE [Concomitant]
     Active Substance: ANASTROZOLE
     Indication: Breast cancer
     Dosage: 1 DOSAGE FORM, QD (TABLET)
     Route: 065
     Dates: start: 20230711
  9. GOSERELIN [Concomitant]
     Active Substance: GOSERELIN
     Indication: Breast cancer
     Route: 065
     Dates: start: 202306
  10. FLUOXETINE [Concomitant]
     Active Substance: FLUOXETINE HYDROCHLORIDE
     Indication: Product used for unknown indication
     Dosage: 3 DOSAGE FORM, QD (IN THE MORNING) (CAPSULE)
     Route: 065
     Dates: start: 202306
  11. CHLORPHENIRAMINE MALEATE [Concomitant]
     Active Substance: CHLORPHENIRAMINE MALEATE
     Indication: Product used for unknown indication
     Dosage: 3 DOSAGE FORM, QD (AT NIGHT) (TABLET)
     Route: 065
     Dates: start: 202308
  12. CHLORPHENIRAMINE MALEATE [Concomitant]
     Active Substance: CHLORPHENIRAMINE MALEATE
     Route: 065
  13. LACTULOSE [Concomitant]
     Active Substance: LACTULOSE
     Indication: Product used for unknown indication
     Dosage: 20 ML, QD
     Route: 065
     Dates: start: 202308
  14. LACTULOSE [Concomitant]
     Active Substance: LACTULOSE
     Route: 065

REACTIONS (34)
  - Generalised oedema [Recovering/Resolving]
  - Skin disorder [Not Recovered/Not Resolved]
  - Peripheral swelling [Recovering/Resolving]
  - Lip swelling [Recovering/Resolving]
  - Rash [Recovering/Resolving]
  - Wound [Recovering/Resolving]
  - Ear swelling [Recovering/Resolving]
  - Myalgia [Recovering/Resolving]
  - Dermatitis allergic [Unknown]
  - Pruritus [Not Recovered/Not Resolved]
  - Rhinitis [Not Recovered/Not Resolved]
  - Erythema [Not Recovered/Not Resolved]
  - Skin exfoliation [Recovering/Resolving]
  - Abdominal discomfort [Not Recovered/Not Resolved]
  - Migraine [Not Recovered/Not Resolved]
  - Pain [Not Recovered/Not Resolved]
  - Malaise [Unknown]
  - Alopecia [Not Recovered/Not Resolved]
  - Constipation [Not Recovered/Not Resolved]
  - Dry skin [Not Recovered/Not Resolved]
  - Headache [Not Recovered/Not Resolved]
  - Diarrhoea [Not Recovered/Not Resolved]
  - Skin wrinkling [Unknown]
  - Inflammation [Unknown]
  - Influenza [Unknown]
  - Dizziness [Not Recovered/Not Resolved]
  - Nasopharyngitis [Recovering/Resolving]
  - Sensitive skin [Unknown]
  - Skin discolouration [Unknown]
  - Pain in extremity [Not Recovered/Not Resolved]
  - Discomfort [Unknown]
  - Hypoaesthesia [Not Recovered/Not Resolved]
  - Insomnia [Not Recovered/Not Resolved]
  - Skin depigmentation [Unknown]

NARRATIVE: CASE EVENT DATE: 20230701
